FAERS Safety Report 16053574 (Version 1)
Quarter: 2019Q1

REPORT INFORMATION
  Report Type: Spontaneous
  Country: AR (occurrence: AR)
  Receive Date: 20190308
  Receipt Date: 20190308
  Transmission Date: 20190418
  Serious: Yes (Hospitalization, Other)
  Sender: FDA-Public Use
  Company Number: AR-009507513-1903ARG001345

PATIENT
  Age: 7 Year

DRUGS (3)
  1. CAPECITABINE. [Concomitant]
     Active Substance: CAPECITABINE
     Indication: METASTATIC NEOPLASM
     Dosage: UNK
     Dates: start: 20181128
  2. TEMOZOLOMIDE. [Suspect]
     Active Substance: TEMOZOLOMIDE
     Indication: METASTASES TO CENTRAL NERVOUS SYSTEM
     Dosage: UNK
     Dates: start: 20181128
  3. TEMOZOLOMIDE. [Suspect]
     Active Substance: TEMOZOLOMIDE
     Dosage: UNK

REACTIONS (6)
  - Malignant neoplasm progression [Not Recovered/Not Resolved]
  - Blood creatine abnormal [Not Recovered/Not Resolved]
  - Amylase abnormal [Not Recovered/Not Resolved]
  - Vomiting [Not Recovered/Not Resolved]
  - Lipase abnormal [Not Recovered/Not Resolved]
  - Blood urea abnormal [Not Recovered/Not Resolved]

NARRATIVE: CASE EVENT DATE: 201902
